FAERS Safety Report 18233610 (Version 1)
Quarter: 2020Q3

REPORT INFORMATION
  Report Type: Spontaneous
  Country: AU (occurrence: AU)
  Receive Date: 20200904
  Receipt Date: 20200904
  Transmission Date: 20201103
  Serious: Yes (Other)
  Sender: FDA-Public Use
  Company Number: AU-PFIZER INC-2020341120

PATIENT
  Age: 17 Year
  Sex: Male

DRUGS (10)
  1. MORPHINE HCL [Suspect]
     Active Substance: MORPHINE HYDROCHLORIDE
     Indication: ANAESTHESIA
     Dosage: 10 MG
     Route: 030
  2. SODIUM BICARBONATE. [Concomitant]
     Active Substance: SODIUM BICARBONATE
     Indication: ANAESTHESIA
     Dosage: 500 MEQ
     Route: 042
  3. HALOTHANE. [Suspect]
     Active Substance: HALOTHANE
     Indication: ANAESTHESIA
     Dosage: UNK
  4. HYDROCORTISONE. [Concomitant]
     Active Substance: HYDROCORTISONE
     Indication: ANAESTHESIA
     Dosage: 500 MG
     Route: 042
  5. THIOPENTONE SODIUM [Suspect]
     Active Substance: THIOPENTAL SODIUM
     Indication: ANAESTHESIA
     Dosage: 300 MG
     Route: 042
  6. NITROUS OXIDE. [Suspect]
     Active Substance: NITROUS OXIDE
     Indication: ANAESTHESIA
     Dosage: UNK
  7. TUBOCURARINE. [Suspect]
     Active Substance: TUBOCURARINE
     Indication: ANAESTHESIA
     Dosage: 25 MG
     Route: 042
  8. PHENOPERIDINE [Suspect]
     Active Substance: PHENOPERIDINE
     Indication: SEDATION
     Dosage: 0.5 MG
     Route: 042
  9. ATROPINE SULFATE. [Suspect]
     Active Substance: ATROPINE SULFATE
     Indication: ANAESTHESIA
     Dosage: 0.6 MG
     Route: 030
  10. SUCCINYLCHOLINE CHLORIDE. [Suspect]
     Active Substance: SUCCINYLCHOLINE CHLORIDE
     Indication: ANAESTHESIA
     Dosage: 75 MG
     Route: 042

REACTIONS (4)
  - Hypertonia [Recovered/Resolved]
  - Vasodilatation [Recovered/Resolved]
  - Hyperpyrexia [Recovered/Resolved]
  - Cyanosis [Recovered/Resolved]
